FAERS Safety Report 9665157 (Version 1)
Quarter: 2013Q4

REPORT INFORMATION
  Report Type: Report from Study
  Country: US (occurrence: US)
  Receive Date: 20131101
  Receipt Date: 20131101
  Transmission Date: 20140711
  Serious: Yes (Death)
  Sender: FDA-Public Use
  Company Number: US-ROCHE-1296779

PATIENT
  Sex: Male

DRUGS (2)
  1. XELODA [Suspect]
     Indication: RECTAL CANCER
     Dosage: 14 DAYS ON AND 7 DAYS OFF
     Route: 048
  2. XELODA [Suspect]
     Indication: HEPATIC CANCER

REACTIONS (1)
  - Death [Fatal]
